FAERS Safety Report 8790613 (Version 2)
Quarter: 2012Q4

REPORT INFORMATION
  Report Type: Spontaneous
  Country: US (occurrence: None)
  Receive Date: 20120824
  Receipt Date: 20120907
  Transmission Date: 20130627
  Serious: Yes (Hospitalization)
  Sender: FDA-Public Use
  Company Number: 2012PROUSA01843

PATIENT
  Age: 91 Year
  Sex: Male
  Weight: 74.8 kg

DRUGS (16)
  1. PROVENGE (SIPULEUCEL-T) SUSPENSION, 250ML [Suspect]
     Indication: PROSTATE CANCER METASTATIC
     Route: 042
     Dates: start: 20120720, end: 20120720
  2. PROVENGE (SIPULEUCEL-T) SUSPENSION, 250ML [Suspect]
     Indication: PROSTATE CANCER METASTATIC
     Route: 042
     Dates: start: 20120803, end: 20120803
  3. FLOMAX (TAMSULOSIN HYDROCHLORIDE) [Concomitant]
  4. FUROSEMIDE (FUROSEMIDE) [Concomitant]
  5. DIGOXIN (DIGOXIN) [Concomitant]
  6. CASODEX (BICALUTAMIDE) [Concomitant]
  7. NORTRIPTYLINE (NORTRIPTYLINE HYDROCHLORIDE) [Concomitant]
  8. GALANTAMINE (GALATAMINE) [Concomitant]
  9. ALENDRONATE SODIUM (ALENDRONATE SODIUM) [Concomitant]
  10. CALTRATE (CALCIUM CARBONATE, COLECALCIFEROL) [Concomitant]
  11. COLACE (DOCUSATE SODIUM) [Concomitant]
  12. POLYETHYLENE GLYCOL (MACROGOL) [Concomitant]
  13. ALBUTEROL (SALBUTAMOL SULFATE) [Concomitant]
  14. XALATAN (LATANOPROST) [Concomitant]
  15. TERAZOSIN HCL (TERAZOSIN HYDROCHLORIDE) [Concomitant]
  16. ASPIRIN (ACETYLSALICYLIC ACID) [Concomitant]

REACTIONS (1)
  - Bronchitis [None]
